FAERS Safety Report 12981691 (Version 1)
Quarter: 2016Q4

REPORT INFORMATION
  Report Type: Spontaneous
  Country: FR (occurrence: FR)
  Receive Date: 20161129
  Receipt Date: 20161129
  Transmission Date: 20170207
  Serious: Yes (Other)
  Sender: FDA-Public Use
  Company Number: FR-ROCHE-1859936

PATIENT
  Age: 75 Year
  Sex: Male

DRUGS (3)
  1. VEMURAFENIB [Suspect]
     Active Substance: VEMURAFENIB
     Indication: ERDHEIM-CHESTER DISEASE
     Route: 065
     Dates: start: 201401
  2. VEMURAFENIB [Suspect]
     Active Substance: VEMURAFENIB
     Route: 065
     Dates: start: 201502
  3. VEMURAFENIB [Suspect]
     Active Substance: VEMURAFENIB
     Route: 065
     Dates: start: 201409

REACTIONS (2)
  - Diffuse vasculitis [Unknown]
  - Acute kidney injury [Recovering/Resolving]
